FAERS Safety Report 4957286-4 (Version None)
Quarter: 2006Q1

REPORT INFORMATION
  Report Type: 
  Country: None (occurrence: None)
  Receive Date: 20060323
  Receipt Date: 20060306
  Transmission Date: 20060701
  Serious: Yes (Hospitalization, Other)
  Sender: FDA-Public Use
  Company Number: USA0509109603

PATIENT
  Age: 79 Year
  Sex: Female

DRUGS (4)
  1. FORTEO [Suspect]
     Indication: OSTEOPOROSIS
     Dates: start: 20050622
  2. FORTEO [Suspect]
     Dates: start: 20050501
  3. FORTEO [Suspect]
     Dates: start: 20050501
  4. FORTEO PEN (FORTEO PEN) [Concomitant]

REACTIONS (11)
  - CLOSTRIDIAL INFECTION [None]
  - DYSGEUSIA [None]
  - FALL [None]
  - FEELING ABNORMAL [None]
  - GASTRIC OPERATION [None]
  - PHARMACEUTICAL PRODUCT COMPLAINT [None]
  - PNEUMONIA [None]
  - RIB FRACTURE [None]
  - THROMBOSIS [None]
  - VOMITING [None]
  - WEIGHT DECREASED [None]
